FAERS Safety Report 5271017-2 (Version None)
Quarter: 2007Q1

REPORT INFORMATION
  Report Type: 
  Country: None (occurrence: None)
  Receive Date: 20061214
  Receipt Date: 20060612
  Transmission Date: 20070707
  Serious: Yes (Other)
  Sender: FDA-Public Use
  Company Number: 2005071883

PATIENT
  Age: 73 Year
  Sex: Female
  Weight: 68.0396 kg

DRUGS (3)
  1. BEXTRA [Suspect]
     Indication: EXOSTOSIS
     Dosage: (10 MG )
     Dates: start: 20020401, end: 20050301
  2. BEXTRA [Suspect]
     Indication: INFLAMMATION
     Dosage: (10 MG )
     Dates: start: 20020401, end: 20050301
  3. BEXTRA [Suspect]
     Indication: PAIN
     Dosage: (10 MG )
     Dates: start: 20020401, end: 20050301

REACTIONS (6)
  - DUODENITIS [None]
  - GASTRIC PH INCREASED [None]
  - GASTRIC ULCER [None]
  - GASTRITIS EROSIVE [None]
  - HIATUS HERNIA [None]
  - REFLUX OESOPHAGITIS [None]
